FAERS Safety Report 9936388 (Version 1)
Quarter: 2014Q1

REPORT INFORMATION
  Report Type: Spontaneous
  Country: US (occurrence: US)
  Receive Date: 20140228
  Receipt Date: 20140228
  Transmission Date: 20141002
  Serious: No
  Sender: FDA-Public Use
  Company Number: US-AMGEN-USASP2014002926

PATIENT
  Age: 47 Year
  Sex: Male
  Weight: 91.6 kg

DRUGS (4)
  1. ENBREL [Suspect]
     Indication: PSORIATIC ARTHROPATHY
     Dosage: UNK UNK, 2 TIMES/WK
     Route: 058
     Dates: start: 201101, end: 201301
  2. ENBREL [Suspect]
     Indication: PSORIASIS
  3. ALLOPURINOL [Concomitant]
     Dosage: UNK
  4. MTV [Concomitant]
     Dosage: UNK

REACTIONS (2)
  - Psoriatic arthropathy [Unknown]
  - Psoriasis [Unknown]
